FAERS Safety Report 7579462-7 (Version None)
Quarter: 2011Q2

REPORT INFORMATION
  Report Type: 
  Country: None (occurrence: None)
  Receive Date: 20110622
  Receipt Date: 20110616
  Transmission Date: 20111010
  Serious: Yes (Other)
  Sender: FDA-Public Use
  Company Number: TPA2011A03190

PATIENT
  Age: 37 Year
  Sex: Male

DRUGS (1)
  1. ROZEREM [Suspect]

REACTIONS (3)
  - DYSARTHRIA [None]
  - SEROTONIN SYNDROME [None]
  - MYOCLONUS [None]
